FAERS Safety Report 9955638 (Version 1)
Quarter: 2014Q1

REPORT INFORMATION
  Report Type: Report from Study
  Country: US (occurrence: US)
  Receive Date: 20140304
  Receipt Date: 20140304
  Transmission Date: 20141002
  Serious: No
  Sender: FDA-Public Use
  Company Number: US-ABBVIE-13P-163-1087064-00

PATIENT
  Age: 54 Year
  Sex: Female

DRUGS (10)
  1. HUMIRA [Suspect]
     Indication: RHEUMATOID ARTHRITIS
     Route: 058
     Dates: start: 20130405
  2. CARDIZEM XL [Concomitant]
     Indication: BLOOD PRESSURE
     Dosage: 120
  3. AVALIDE [Concomitant]
     Indication: BLOOD PRESSURE
  4. SINGULAIR [Concomitant]
     Indication: ASTHMA
  5. ALLEGRA [Concomitant]
     Indication: ASTHMA
  6. ADVAIR [Concomitant]
     Indication: ASTHMA
  7. PROVENTIL [Concomitant]
     Indication: ASTHMA
  8. TRAMADOL [Concomitant]
     Indication: PAIN
  9. TEMAZEPAM [Concomitant]
     Indication: INSOMNIA
  10. MULTIVITAMINS [Concomitant]
     Indication: PRODUCT USED FOR UNKNOWN INDICATION

REACTIONS (2)
  - Injection site erosion [Recovering/Resolving]
  - Injection site bruising [Recovering/Resolving]
